FAERS Safety Report 8875693 (Version 1)
Quarter: 2012Q4

REPORT INFORMATION
  Report Type: 
  Country: US (occurrence: US)
  Receive Date: 20121023
  Receipt Date: 20121023
  Transmission Date: 20130627
  Serious: Yes (Other)
  Sender: FDA-Public Use
  Company Number: PHEH2012US020585

PATIENT
  Age: 43 Year
  Sex: Female
  Weight: 43.08 kg

DRUGS (2)
  1. GILENYA [Suspect]
     Indication: MULTIPLE SCLEROSIS
     Dosage: 0.5 mg, QD
     Route: 048
     Dates: start: 20121017, end: 20121017
  2. VESICARE [Concomitant]
     Dosage: 5 mg, QD
     Route: 048

REACTIONS (2)
  - Bradycardia [Recovered/Resolved]
  - Electrocardiogram QRS complex prolonged [Unknown]
